FAERS Safety Report 13776134 (Version 3)
Quarter: 2017Q3

REPORT INFORMATION
  Report Type: Spontaneous
  Country: IN (occurrence: IN)
  Receive Date: 20170720
  Receipt Date: 20170728
  Transmission Date: 20171127
  Serious: Yes (Life-Threatening, Hospitalization, Other)
  Sender: FDA-Public Use
  Company Number: IN-BAUSCH-BL-2017-022151

PATIENT
  Age: 56 Year
  Sex: Female

DRUGS (3)
  1. METRONIDAZOLE. [Suspect]
     Active Substance: METRONIDAZOLE
     Indication: GASTROENTERITIS
     Route: 048
  2. METRONIDAZOLE. [Suspect]
     Active Substance: METRONIDAZOLE
     Indication: DIARRHOEA
  3. METRONIDAZOLE. [Suspect]
     Active Substance: METRONIDAZOLE
     Indication: VOMITING

REACTIONS (1)
  - Toxic encephalopathy [Recovered/Resolved]
